FAERS Safety Report 18181512 (Version 1)
Quarter: 2020Q3

REPORT INFORMATION
  Report Type: Spontaneous
  Country: DE (occurrence: DE)
  Receive Date: 20200821
  Receipt Date: 20200821
  Transmission Date: 20201103
  Serious: Yes (Hospitalization)
  Sender: FDA-Public Use
  Company Number: DE-MYLANLABS-2020M1071724

PATIENT
  Age: 76 Year
  Sex: Female
  Weight: 100 kg

DRUGS (11)
  1. LEVOTHYROXINUM NATRICUM [Concomitant]
     Dosage: 50 MICROGRAM, QD 1?0?0?0
  2. TORASEMID [Concomitant]
     Active Substance: TORSEMIDE
     Dosage: 20 MILLIGRAM, QD 1?0?0?0
  3. APIXABAN [Concomitant]
     Active Substance: APIXABAN
     Dosage: 2.5 MILLIGRAM, BID 1?0?1?0
  4. METAMIZOL                          /06276701/ [Concomitant]
     Active Substance: METAMIZOLE
     Dosage: 500 MILLIGRAM, QID 1?1?1?1
  5. APIXABAN [Concomitant]
     Active Substance: APIXABAN
     Dosage: UNK
  6. PIPAMPERON [Concomitant]
     Active Substance: PIPAMPERONE HYDROCHLORIDE
     Dosage: 40 MILLIGRAM, QD 0?0?0?1
  7. BISOPROLOL [Suspect]
     Active Substance: BISOPROLOL
     Indication: PRODUCT USED FOR UNKNOWN INDICATION
     Dosage: 5 MILLIGRAM, QD 1?0?0?0
  8. CANDESARTAN. [Concomitant]
     Active Substance: CANDESARTAN
     Dosage: 4 MILLIGRAM, QD 1?0?0?0
  9. CANDESARTAN. [Concomitant]
     Active Substance: CANDESARTAN
     Dosage: UNK
  10. PANTOPRAZOL                        /01263201/ [Concomitant]
     Active Substance: PANTOPRAZOLE
     Dosage: 20 MILLIGRAM, QD 1?0?0?0
  11. ACLIDINIUM BROMIDE W/FORMOTEROL FUMARATE [Concomitant]
     Active Substance: ACLIDINIUM BROMIDE\FORMOTEROL FUMARATE
     Dosage: 1?0?1?0 BID

REACTIONS (12)
  - Skin lesion [Recovering/Resolving]
  - Dyspnoea [Recovering/Resolving]
  - Productive cough [Recovering/Resolving]
  - Respiratory acidosis [Recovering/Resolving]
  - Cough [Recovering/Resolving]
  - Tachypnoea [Recovering/Resolving]
  - Pruritus [Recovering/Resolving]
  - Stasis dermatitis [Recovering/Resolving]
  - Carbon dioxide increased [Recovering/Resolving]
  - Respiratory failure [Recovering/Resolving]
  - Wheezing [Recovering/Resolving]
  - Oedema peripheral [Recovering/Resolving]
